FAERS Safety Report 23855019 (Version 2)
Quarter: 2024Q3

REPORT INFORMATION
  Report Type: Spontaneous
  Country: JP (occurrence: JP)
  Receive Date: 20240514
  Receipt Date: 20240930
  Transmission Date: 20241017
  Serious: Yes (Hospitalization, Other)
  Sender: MERCK
  Company Number: JP-MSD-M2024-07172

PATIENT
  Age: 73 Year
  Sex: Female
  Weight: 41 kg

DRUGS (5)
  1. KEYTRUDA [Suspect]
     Active Substance: PEMBROLIZUMAB
     Indication: Pancreatic carcinoma
     Dosage: 200 MILLIGRAM, Q3W
     Route: 041
     Dates: start: 20231206, end: 20240207
  2. KEYTRUDA [Suspect]
     Active Substance: PEMBROLIZUMAB
     Indication: Microsatellite instability cancer
  3. CELECOXIB [Concomitant]
     Active Substance: CELECOXIB
     Indication: Pain management
     Dosage: 100 MILLIGRAM, BID
     Route: 048
     Dates: start: 20230329, end: 20240424
  4. ACETAMINOPHEN [Concomitant]
     Active Substance: ACETAMINOPHEN
     Indication: Pain management
     Dosage: 500 MILLIGRAM, QID
     Route: 048
     Dates: start: 20230329, end: 20240424
  5. VONOPRAZAN FUMARATE [Concomitant]
     Active Substance: VONOPRAZAN FUMARATE
     Indication: Gastrooesophageal reflux disease
     Dosage: 20 MILLIGRAM, QD
     Route: 048
     Dates: start: 20230329, end: 20240424

REACTIONS (3)
  - Immune-mediated neurological disorder [Recovered/Resolved]
  - Immune-mediated encephalitis [Recovered/Resolved]
  - Immune-mediated myelitis [Recovered/Resolved]

NARRATIVE: CASE EVENT DATE: 20240213
